FAERS Safety Report 14363251 (Version 3)
Quarter: 2018Q2

REPORT INFORMATION
  Report Type: Spontaneous
  Country: US (occurrence: US)
  Receive Date: 20180108
  Receipt Date: 20180509
  Transmission Date: 20180711
  Serious: Yes (Other)
  Sender: FDA-Public Use
  Company Number: US-BAYER-2018-001454

PATIENT
  Age: 32 Year
  Sex: Female
  Weight: 62.13 kg

DRUGS (3)
  1. LIDOCAIN [Suspect]
     Active Substance: LIDOCAINE
     Dosage: UNK
     Dates: start: 20171229
  2. MIRENA [Suspect]
     Active Substance: LEVONORGESTREL
     Indication: CONTRACEPTION
  3. MIRENA [Suspect]
     Active Substance: LEVONORGESTREL
     Indication: CONTRACEPTION
     Dosage: 20 MCG/24HR, CONT
     Route: 015
     Dates: start: 20171229, end: 20171229

REACTIONS (2)
  - Device difficult to use [Recovered/Resolved]
  - Embedded device [Recovered/Resolved]

NARRATIVE: CASE EVENT DATE: 20171229
